FAERS Safety Report 25009881 (Version 3)
Quarter: 2025Q3

REPORT INFORMATION
  Report Type: Report from Study
  Country: US (occurrence: US)
  Receive Date: 20250225
  Receipt Date: 20250809
  Transmission Date: 20251021
  Serious: Yes (Hospitalization, Other)
  Sender: ALEXION PHARMACEUTICALS
  Company Number: US-ASTRAZENECA-202502USA017754US

PATIENT
  Age: 59 Year
  Sex: Female

DRUGS (1)
  1. STRENSIQ [Suspect]
     Active Substance: ASFOTASE ALFA
     Indication: Iron metabolism disorder
     Dosage: 1 MILLIGRAM/KILOGRAM, SIX TIMES/WEEK
     Route: 065

REACTIONS (6)
  - Tooth fracture [Unknown]
  - Calcinosis [Unknown]
  - Nephrolithiasis [Unknown]
  - Back pain [Unknown]
  - Arthralgia [Unknown]
  - Fall [Unknown]

NARRATIVE: CASE EVENT DATE: 20240501
